FAERS Safety Report 19438348 (Version 2)
Quarter: 2023Q4

REPORT INFORMATION
  Report Type: Spontaneous
  Country: US (occurrence: US)
  Receive Date: 20210619
  Receipt Date: 20231221
  Transmission Date: 20240110
  Serious: Yes (Other)
  Sender: FDA-Public Use
  Company Number: US-AUROBINDO-AUR-APL-2021-024490

PATIENT
  Age: 56 Year
  Sex: Female

DRUGS (3)
  1. IBUPROFEN [Interacting]
     Active Substance: IBUPROFEN
     Indication: Product used for unknown indication
     Dosage: UNK
     Route: 065
  2. HYDROXYCHLOROQUINE [Suspect]
     Active Substance: HYDROXYCHLOROQUINE
     Indication: Rheumatoid arthritis
     Dosage: 400 MILLIGRAM, DAILY
     Route: 065
  3. NABUMETONE [Suspect]
     Active Substance: NABUMETONE
     Indication: Product used for unknown indication
     Dosage: UNK
     Route: 065

REACTIONS (4)
  - Retinopathy [Unknown]
  - Toxicity to various agents [Unknown]
  - Drug interaction [Unknown]
  - Overdose [Unknown]
